FAERS Safety Report 11288809 (Version 1)
Quarter: 2015Q3

REPORT INFORMATION
  Report Type: Spontaneous
  Country: US (occurrence: US)
  Receive Date: 20150721
  Receipt Date: 20150721
  Transmission Date: 20151125
  Serious: No
  Sender: FDA-Public Use
  Company Number: US-UNITED THERAPEUTICS-UNT-2014-012401

PATIENT
  Age: 32 Year
  Sex: Female
  Weight: 68.27 kg

DRUGS (1)
  1. REMODULIN [Suspect]
     Active Substance: TREPROSTINIL
     Indication: PULMONARY ARTERIAL HYPERTENSION
     Dosage: 0.02875 ?G/KG/MIN, CONTINUING
     Route: 058
     Dates: start: 20141113

REACTIONS (6)
  - Thrombosis in device [Unknown]
  - Device dislocation [Unknown]
  - Drug dose omission [Unknown]
  - Infusion site irritation [Unknown]
  - Dermatitis contact [Unknown]
  - Infusion site pain [Not Recovered/Not Resolved]

NARRATIVE: CASE EVENT DATE: 2014
